FAERS Safety Report 6341339-2 (Version None)
Quarter: 2009Q3

REPORT INFORMATION
  Report Type: 
  Country: None (occurrence: None)
  Receive Date: 20090904
  Receipt Date: 20090826
  Transmission Date: 20100115
  Serious: Yes (Other)
  Sender: FDA-Public Use
  Company Number: PHHY2009CL36308

PATIENT
  Age: 24 Year
  Sex: Male

DRUGS (1)
  1. LEPONEX [Suspect]
     Indication: SCHIZOPHRENIA
     Dosage: 75 MG PER DAY
     Dates: start: 20090501

REACTIONS (3)
  - AGGRESSION [None]
  - FACE INJURY [None]
  - FACIAL BONES FRACTURE [None]
